FAERS Safety Report 9443733 (Version 1)
Quarter: 2013Q3

REPORT INFORMATION
  Report Type: Spontaneous
  Country: US (occurrence: US)
  Receive Date: 20130806
  Receipt Date: 20130806
  Transmission Date: 20140515
  Serious: Yes (Hospitalization)
  Sender: FDA-Public Use
  Company Number: US-GILEAD-2013-0079613

PATIENT
  Sex: Female

DRUGS (16)
  1. LETAIRIS [Suspect]
     Indication: PULMONARY HYPERTENSION
     Dosage: 10 MG, UNK
     Route: 048
     Dates: start: 20110510
  2. RANEXA [Concomitant]
  3. HYDROCODONE [Concomitant]
  4. ALPRAZOLAM [Concomitant]
  5. WELLBUTRIN [Concomitant]
  6. CYANOCOBALAMIN [Concomitant]
  7. DEXILANT [Concomitant]
  8. CYMBALTA [Concomitant]
  9. FENOFIBRIC ACID [Concomitant]
  10. FUROSEMIDE [Concomitant]
  11. OXYBUTYNIN [Concomitant]
  12. QUALAQUIN [Concomitant]
  13. CRESTOR [Concomitant]
  14. SILDENAFIL [Concomitant]
  15. TRAMADOL [Concomitant]
  16. WARFARIN [Concomitant]
     Dosage: 7.5 MG, QD
     Route: 048

REACTIONS (2)
  - Cellulitis [Unknown]
  - Abdominal pain [Unknown]
